FAERS Safety Report 23396741 (Version 1)
Quarter: 2024Q1

REPORT INFORMATION
  Report Type: Spontaneous
  Country: US (occurrence: US)
  Receive Date: 20240112
  Receipt Date: 20240112
  Transmission Date: 20240409
  Serious: Yes (Hospitalization)
  Sender: FDA-Public Use
  Company Number: US-MYLANLABS-2024M1003336

PATIENT
  Age: 81 Year
  Sex: Female

DRUGS (5)
  1. LEVOFLOXACIN [Suspect]
     Active Substance: LEVOFLOXACIN
     Indication: Product used for unknown indication
     Dosage: UNK
     Route: 065
  2. CIMETIDINE [Suspect]
     Active Substance: CIMETIDINE
     Indication: Product used for unknown indication
     Dosage: UNK
     Route: 065
  3. ISOPROTERENOL HYDROCHLORIDE [Suspect]
     Active Substance: ISOPROTERENOL HYDROCHLORIDE
     Indication: Long QT syndrome
     Dosage: UNK
     Route: 042
  4. MAGNESIUM [Concomitant]
     Active Substance: MAGNESIUM
     Indication: Mineral supplementation
     Dosage: UNK
     Route: 042
  5. POTASSIUM [Concomitant]
     Active Substance: POTASSIUM
     Indication: Mineral supplementation
     Dosage: UNK
     Route: 042

REACTIONS (8)
  - Long QT syndrome [Recovered/Resolved]
  - Supraventricular extrasystoles [Recovering/Resolving]
  - Torsade de pointes [Recovered/Resolved]
  - Electrocardiogram RR interval abnormal [Recovering/Resolving]
  - Blood potassium decreased [Recovering/Resolving]
  - Wolff-Parkinson-White syndrome [Recovering/Resolving]
  - Ventricular tachycardia [Recovering/Resolving]
  - Off label use [Unknown]
